FAERS Safety Report 10613849 (Version 2)
Quarter: 2015Q2

REPORT INFORMATION
  Report Type: Spontaneous
  Country: FR (occurrence: FR)
  Receive Date: 20141128
  Receipt Date: 20150427
  Transmission Date: 20150821
  Serious: Yes (Hospitalization)
  Sender: FDA-Public Use
  Company Number: FR-009507513-1411FRA010697

PATIENT
  Age: 48 Year
  Sex: Male

DRUGS (12)
  1. VASTEN [Concomitant]
     Active Substance: PRAVASTATIN SODIUM
  2. ZANIDIP [Concomitant]
     Active Substance: LERCANIDIPINE HYDROCHLORIDE
     Dosage: 20 MG (1 DF), QD
     Route: 048
     Dates: start: 2013
  3. PREZISTA [Suspect]
     Active Substance: DARUNAVIR ETHANOLATE
     Dosage: 800 MG(2 DF), QD
     Route: 048
     Dates: start: 20121005, end: 20141007
  4. PLAVIX [Concomitant]
     Active Substance: CLOPIDOGREL BISULFATE
     Dosage: 75 MG(1DF), QD
     Route: 048
     Dates: start: 2006
  5. ISENTRESS [Suspect]
     Active Substance: RALTEGRAVIR POTASSIUM
     Dosage: 800 MG(2 DF), QD
     Route: 048
     Dates: start: 20120817, end: 20130903
  6. ZOLPIDEM TARTRATE. [Concomitant]
     Active Substance: ZOLPIDEM TARTRATE
     Dosage: 10 MG, QD
     Dates: start: 2013
  7. INEXIUM (ESOMEPRAZOLE SODIUM) [Concomitant]
     Active Substance: ESOMEPRAZOLE
     Dosage: 20 MG (1 DF), QD
     Route: 048
     Dates: start: 201106
  8. CALCIDOSE [Concomitant]
     Active Substance: CALCIUM CARBONATE
     Dosage: 500 MG (1DF), QD
     Route: 048
     Dates: start: 2014
  9. NORVIR [Suspect]
     Active Substance: RITONAVIR
     Dosage: 100 MG (1 DF), QD
     Route: 048
     Dates: start: 20120920, end: 20141007
  10. FOLIC ACID. [Concomitant]
     Active Substance: FOLIC ACID
     Dosage: 5 MG, QD
     Route: 048
     Dates: start: 2013
  11. ATACAND [Concomitant]
     Active Substance: CANDESARTAN CILEXETIL
     Dosage: 16 MG (1 DF), QD
     Route: 048
  12. XANAX [Concomitant]
     Active Substance: ALPRAZOLAM
     Dosage: 0.25 MG(1 DF), QD
     Route: 048
     Dates: start: 2013

REACTIONS (2)
  - Weight increased [Recovered/Resolved with Sequelae]
  - Abdominal distension [Recovered/Resolved with Sequelae]

NARRATIVE: CASE EVENT DATE: 201306
